FAERS Safety Report 19360731 (Version 1)
Quarter: 2021Q2

REPORT INFORMATION
  Report Type: Report from Study
  Country: US (occurrence: US)
  Receive Date: 20210601
  Receipt Date: 20210601
  Transmission Date: 20210717
  Serious: Yes (Other)
  Sender: FDA-Public Use
  Company Number: US-TAKEDA-2021TUS034408

PATIENT
  Sex: Female
  Weight: 70.75 kg

DRUGS (21)
  1. VALIUM [Concomitant]
     Active Substance: DIAZEPAM
  2. EPINEPHRINE. [Concomitant]
     Active Substance: EPINEPHRINE
  3. ZYPREXA [Concomitant]
     Active Substance: OLANZAPINE
  4. NAPROXEN. [Concomitant]
     Active Substance: NAPROXEN
  5. OXYCODONE [Concomitant]
     Active Substance: OXYCODONE
  6. HUMAN NORMAL IMMUNOGLOBULIN; LIQUID [Suspect]
     Active Substance: HUMAN IMMUNOGLOBULIN G
     Indication: POLYNEUROPATHY
  7. LEXAPRO [Concomitant]
     Active Substance: ESCITALOPRAM OXALATE
  8. CYCLOBENZAPRINE. [Concomitant]
     Active Substance: CYCLOBENZAPRINE
  9. ALBUTEROL SULFATE. [Concomitant]
     Active Substance: ALBUTEROL SULFATE
  10. GABAPENTIN. [Concomitant]
     Active Substance: GABAPENTIN
  11. HEPARIN [Concomitant]
     Active Substance: HEPARIN SODIUM
  12. LIDOCAINE. [Concomitant]
     Active Substance: LIDOCAINE
  13. CLONAZEPAM. [Concomitant]
     Active Substance: CLONAZEPAM
  14. HUMAN NORMAL IMMUNOGLOBULIN; LIQUID [Suspect]
     Active Substance: HUMAN IMMUNOGLOBULIN G
     Indication: CHRONIC INFLAMMATORY DEMYELINATING POLYRADICULONEUROPATHY
     Dosage: 30 GRAM, QD FOR 5D
     Route: 042
     Dates: start: 20210505
  15. ACETAMINOPHEN. [Concomitant]
     Active Substance: ACETAMINOPHEN
  16. DIPHENHYDRAMINE. [Concomitant]
     Active Substance: DIPHENHYDRAMINE
  17. SODIUM CHLORIDE. [Concomitant]
     Active Substance: SODIUM CHLORIDE
  18. HUMAN NORMAL IMMUNOGLOBULIN; LIQUID [Suspect]
     Active Substance: HUMAN IMMUNOGLOBULIN G
     Indication: MONOCLONAL GAMMOPATHY
  19. AMBIEN [Concomitant]
     Active Substance: ZOLPIDEM TARTRATE
  20. TRAZODONE [Concomitant]
     Active Substance: TRAZODONE HYDROCHLORIDE
  21. MULTIVITAMINS [Concomitant]
     Active Substance: VITAMINS

REACTIONS (1)
  - Neoplasm malignant [Unknown]
